FAERS Safety Report 10501053 (Version 1)
Quarter: 2014Q4

REPORT INFORMATION
  Report Type: Spontaneous
  Country: US (occurrence: None)
  Receive Date: 20141006
  Receipt Date: 20141006
  Transmission Date: 20150528
  Serious: Yes (Life-Threatening, Hospitalization)
  Sender: FDA-Public Use
  Company Number: None

PATIENT
  Age: 78 Year
  Sex: Male
  Weight: 85.2 kg

DRUGS (32)
  1. ALLOPURINOL. [Concomitant]
     Active Substance: ALLOPURINOL
  2. DOCUSATE CAP [Concomitant]
  3. HYDROCHLOROTHIAZIDE. [Concomitant]
     Active Substance: HYDROCHLOROTHIAZIDE
  4. SENNA TAB [Concomitant]
  5. TIMOLOL SLON, POH [Concomitant]
  6. VENLAFAXINE TAB [Concomitant]
  7. INSULIN DETEMIR [Concomitant]
     Active Substance: INSULIN DETEMIR
  8. LORATADINE TAB [Concomitant]
  9. POTASSIUM CHLORIDE (K-DUR) [Concomitant]
  10. SODIUM CHLORIDE SOL [Concomitant]
  11. DEXTROSE. [Concomitant]
     Active Substance: DEXTROSE
  12. LIDOCAINE JELLY [Concomitant]
     Active Substance: LIDOCAINE
  13. ACETAMINOPHEN. [Concomitant]
     Active Substance: ACETAMINOPHEN
  14. ATROPINE [Concomitant]
     Active Substance: ATROPINE
  15. MAGNESIUM OXIDE. [Concomitant]
     Active Substance: MAGNESIUM OXIDE
  16. ASPIRIN. [Concomitant]
     Active Substance: ASPIRIN
  17. BISACODYL SUPP [Concomitant]
  18. GUAIFENSEN LIQUID [Concomitant]
  19. HYDROCODONE/ACETAMINOPHEN [Concomitant]
     Active Substance: ACETAMINOPHEN\HYDROCODONE
  20. INSULIN REGULAR [Concomitant]
     Active Substance: INSULIN NOS
  21. LATANOPROST SOLN [Concomitant]
  22. POLYETHYLENE GLYCOL POWDER [Concomitant]
  23. BACLOFEN. [Concomitant]
     Active Substance: BACLOFEN
  24. GLUCAGON. [Concomitant]
     Active Substance: GLUCAGON
  25. LISINOPRIL TAB [Concomitant]
  26. VANCOMYCIN [Suspect]
     Active Substance: VANCOMYCIN
     Indication: SEPSIS
     Route: 042
     Dates: start: 20140905, end: 20140905
  27. PIPERACILLIN/TAZOBACTAM [Suspect]
     Active Substance: PIPERACILLIN SODIUM\TAZOBACTAM SODIUM
     Indication: SEPSIS
     Dates: start: 20140905, end: 20140905
  28. BRIMONIDINE [Concomitant]
     Active Substance: BRIMONIDINE\BRIMONIDINE TARTRATE
  29. DORZOLAMIDE/TIMOLOL SOL [Concomitant]
  30. PREDNISOLON OPTH SUSPC [Concomitant]
  31. SIMVASTATIN TAB [Concomitant]
     Active Substance: SIMVASTATIN
  32. SODIUM CHLORIDE OINT [Concomitant]

REACTIONS (9)
  - Productive cough [None]
  - Anaphylactic reaction [None]
  - Tachycardia [None]
  - Malaise [None]
  - Haemoptysis [None]
  - Crepitations [None]
  - Chills [None]
  - Dyspnoea at rest [None]
  - Diarrhoea [None]

NARRATIVE: CASE EVENT DATE: 20140905
